FAERS Safety Report 13844907 (Version 1)
Quarter: 2017Q3

REPORT INFORMATION
  Report Type: Other
  Country: US (occurrence: US)
  Receive Date: 20170808
  Receipt Date: 20170808
  Transmission Date: 20171127
  Serious: Yes (Other)
  Sender: FDA-Public Use
  Company Number: US-GLENMARK PHARMACEUTICALS-2017GMK027767

PATIENT

DRUGS (1)
  1. LITHIUM CARBONATE. [Suspect]
     Active Substance: LITHIUM CARBONATE
     Indication: PRODUCT USED FOR UNKNOWN INDICATION
     Dosage: ONE OR TWO PILLS AN HOUR BEFORE BED
     Route: 065

REACTIONS (6)
  - Neurotoxicity [Unknown]
  - Product substitution issue [Unknown]
  - Pain [Unknown]
  - Product formulation issue [Unknown]
  - Abdominal discomfort [Unknown]
  - Fatigue [Unknown]
